FAERS Safety Report 6764818-2 (Version None)
Quarter: 2010Q2

REPORT INFORMATION
  Report Type: 
  Country: None (occurrence: None)
  Receive Date: 20100609
  Receipt Date: 20100509
  Transmission Date: 20101027
  Serious: No
  Sender: FDA-Public Use
  Company Number: 2010011544

PATIENT
  Age: 6 Year
  Sex: Male

DRUGS (1)
  1. CHILDREN'S ZYRTEC ALLERGY [Suspect]
     Indication: HYPERSENSITIVITY
     Dosage: TWO TEASPOONSFUL EVERY 4-6 HOURS, ORAL
     Route: 048
     Dates: start: 20100301, end: 20100507

REACTIONS (3)
  - EPISTAXIS [None]
  - INCORRECT DOSE ADMINISTERED [None]
  - PRODUCT QUALITY ISSUE [None]
